FAERS Safety Report 7508190-9 (Version None)
Quarter: 2011Q2

REPORT INFORMATION
  Report Type: 
  Country: None (occurrence: None)
  Receive Date: 20110527
  Receipt Date: 20110524
  Transmission Date: 20111010
  Serious: Yes (Other)
  Sender: FDA-Public Use
  Company Number: US-PFIZER INC-2011112222

PATIENT
  Sex: Male
  Weight: 77.551 kg

DRUGS (12)
  1. ATENOLOL [Concomitant]
     Dosage: 50 MG, UNK
  2. VITAMIN B-12 [Concomitant]
     Dosage: UNK
  3. DETROL LA [Suspect]
     Indication: HYPERTONIC BLADDER
     Dosage: UNK
     Route: 048
     Dates: start: 20010101, end: 20110501
  4. BENICAR [Concomitant]
     Dosage: 5 MG, UNK
  5. WARFARIN [Concomitant]
     Indication: ANTICOAGULANT THERAPY
     Dosage: UNK
     Dates: start: 20010101
  6. PLAVIX [Concomitant]
     Indication: PROPHYLAXIS
     Dosage: 75 MG, UNK
  7. LIPITOR [Concomitant]
     Dosage: 400 MG, DAILY
  8. HYDROCHLOROTHIAZIDE [Concomitant]
     Dosage: 5 MG, UNK
  9. TOVIAZ [Suspect]
     Indication: HYPERTONIC BLADDER
     Dosage: 8 MG, DAILY
     Route: 048
     Dates: start: 20110513
  10. TIZANIDINE [Concomitant]
     Indication: MUSCLE RELAXANT THERAPY
     Dosage: 4 MG, UNK
  11. VITAMIN B6 [Concomitant]
     Dosage: UNK
  12. VITAMIN E [Concomitant]
     Dosage: UNK

REACTIONS (8)
  - AGITATION [None]
  - PROSTATIC SPECIFIC ANTIGEN INCREASED [None]
  - POLLAKIURIA [None]
  - DIZZINESS [None]
  - VISION BLURRED [None]
  - INFECTION [None]
  - ASTHENIA [None]
  - SOMNOLENCE [None]
